FAERS Safety Report 24342601 (Version 1)
Quarter: 2024Q3

REPORT INFORMATION
  Report Type: Spontaneous
  Country: US (occurrence: US)
  Receive Date: 20240920
  Receipt Date: 20240920
  Transmission Date: 20241017
  Serious: Yes (Other)
  Sender: JOHNSON AND JOHNSON
  Company Number: US-JNJFOC-20240927334

PATIENT
  Age: 54 Year
  Sex: Male

DRUGS (2)
  1. ACETAMINOPHEN [Suspect]
     Active Substance: ACETAMINOPHEN
     Indication: Jaw fracture
     Dosage: UNCERTAIN AMOUNTS
     Route: 065
  2. ACETAMINOPHEN [Suspect]
     Active Substance: ACETAMINOPHEN
     Indication: Pain in jaw

REACTIONS (7)
  - Confusional state [Unknown]
  - Hypothermia [Unknown]
  - Blood lactic acid increased [Unknown]
  - Acute hepatic failure [Unknown]
  - Shock [Unknown]
  - Ischaemic hepatitis [Unknown]
  - Overdose [Unknown]
